FAERS Safety Report 5702801-6 (Version None)
Quarter: 2008Q2

REPORT INFORMATION
  Report Type: 
  Country: None (occurrence: None)
  Receive Date: 20080411
  Receipt Date: 20080402
  Transmission Date: 20081010
  Serious: Yes (Hospitalization, Other)
  Sender: FDA-Public Use
  Company Number: US-ELI_LILLY_AND_COMPANY-US200804001237

PATIENT
  Sex: Female

DRUGS (2)
  1. HUMALOG [Suspect]
  2. LANTUS [Concomitant]

REACTIONS (9)
  - ASTHENIA [None]
  - BLOOD GLUCOSE INCREASED [None]
  - BONE MARROW DISORDER [None]
  - FRACTURE [None]
  - HAEMORRHAGE [None]
  - SPINAL COLUMN STENOSIS [None]
  - STENT OCCLUSION [None]
  - STENT PLACEMENT [None]
  - VOLUME BLOOD DECREASED [None]
